FAERS Safety Report 14226548 (Version 1)
Quarter: 2017Q4

REPORT INFORMATION
  Report Type: Spontaneous
  Country: CN (occurrence: CN)
  Receive Date: 20171127
  Receipt Date: 20171127
  Transmission Date: 20180321
  Serious: Yes (Hospitalization, Other)
  Sender: FDA-Public Use
  Company Number: CN-GLAXOSMITHKLINE-CN2017GSK178597

PATIENT
  Age: 55 Year
  Sex: Male
  Weight: 80 kg

DRUGS (6)
  1. CEFUROXIME SODIUM. [Suspect]
     Active Substance: CEFUROXIME SODIUM
     Dosage: UNK
  2. MORPHINE [Concomitant]
     Active Substance: MORPHINE
  3. MIDAZOLAM [Concomitant]
     Active Substance: MIDAZOLAM HYDROCHLORIDE
  4. SCOPOLAMINE [Concomitant]
     Active Substance: SCOPOLAMINE
  5. SUFENTANIL [Concomitant]
     Active Substance: SUFENTANIL
  6. CISATRACURIUM BESILATE [Concomitant]
     Active Substance: CISATRACURIUM BESYLATE

REACTIONS (8)
  - Ventricular tachycardia [Recovered/Resolved]
  - Flushing [Recovered/Resolved]
  - Anaphylactic shock [Recovered/Resolved]
  - Blood pressure decreased [Recovered/Resolved]
  - Mydriasis [Recovered/Resolved]
  - Ventricular fibrillation [Recovered/Resolved]
  - Hypoxia [Recovered/Resolved]
  - Heart rate increased [Recovered/Resolved]
